FAERS Safety Report 13142097 (Version 1)
Quarter: 2017Q1

REPORT INFORMATION
  Report Type: Spontaneous
  Country: IT (occurrence: IT)
  Receive Date: 20170123
  Receipt Date: 20170123
  Transmission Date: 20170428
  Serious: Yes (Death, Other)
  Sender: FDA-Public Use
  Company Number: IT-PFIZER INC-3195616

PATIENT
  Age: 42 Year
  Sex: Male
  Weight: 60 kg

DRUGS (3)
  1. STELARA [Suspect]
     Active Substance: USTEKINUMAB
     Indication: PSORIASIS
     Dosage: 45 MG, CYCLIC
     Route: 058
     Dates: start: 20130902, end: 20150423
  2. METHOTREXATE SODIUM. [Suspect]
     Active Substance: METHOTREXATE SODIUM
     Indication: PSORIASIS
     Dosage: 10 MG, CYCLIC
     Dates: start: 20130411
  3. FOLINA /00024201/ [Concomitant]
     Active Substance: FOLIC ACID
     Indication: ANAEMIA MACROCYTIC
     Dosage: 3 DF, UNK
     Dates: start: 20131101, end: 20150811

REACTIONS (2)
  - Sudden death [Fatal]
  - Pancreatic neoplasm [Unknown]

NARRATIVE: CASE EVENT DATE: 20150811
